FAERS Safety Report 8201649-0 (Version None)
Quarter: 2012Q1

REPORT INFORMATION
  Report Type: 
  Country: None (occurrence: None)
  Receive Date: 20120307
  Receipt Date: 20120227
  Transmission Date: 20120608
  Serious: Yes (Other)
  Sender: FDA-Public Use
  Company Number: AUR-APL-2012-01211

PATIENT
  Age: 50 Year
  Sex: Male

DRUGS (8)
  1. DILTIAZEM [Concomitant]
  2. DIGOXIN [Concomitant]
  3. CITALOPRAM HYDROBROMIDE [Suspect]
     Indication: ANTIDEPRESSANT THERAPY
     Dosage: (40 MG)
  4. FOLIC ACID [Concomitant]
  5. PREGABALIN [Concomitant]
  6. PERINDOPRIL ERBUMINE [Concomitant]
  7. ATORVASTATIN [Concomitant]
  8. VITAMIN D [Concomitant]

REACTIONS (1)
  - CONFUSIONAL STATE [None]
